FAERS Safety Report 10229664 (Version 2)
Quarter: 2014Q2

REPORT INFORMATION
  Report Type: Spontaneous
  Country: IT (occurrence: IT)
  Receive Date: 20140611
  Receipt Date: 20140630
  Transmission Date: 20141212
  Serious: Yes (Hospitalization)
  Sender: FDA-Public Use
  Company Number: IT-JNJFOC-20140604452

PATIENT
  Age: 93 Year
  Sex: Female

DRUGS (3)
  1. PATROL [Suspect]
     Indication: BACK PAIN
     Dosage: 37.5 325MG COMPRESSE RIVESTITE CON FILM
     Route: 048
     Dates: start: 20140513, end: 20140518
  2. ACEDIUR [Concomitant]
     Indication: HYPERTENSION
     Route: 048
  3. CARDIOASPIRIN [Concomitant]
     Indication: MYOCARDIAL ISCHAEMIA
     Route: 048

REACTIONS (3)
  - Presyncope [Recovered/Resolved]
  - Psychomotor skills impaired [Recovered/Resolved]
  - Vomiting [Recovered/Resolved]
